FAERS Safety Report 17240710 (Version 1)
Quarter: 2020Q1

REPORT INFORMATION
  Report Type: Report from Study
  Country: DE (occurrence: DE)
  Receive Date: 20200107
  Receipt Date: 20200107
  Transmission Date: 20200409
  Serious: Yes (Death)
  Sender: FDA-Public Use
  Company Number: DE-TEVA-2020-DE-1164279

PATIENT

DRUGS (3)
  1. DEXAMETHASONE. [Suspect]
     Active Substance: DEXAMETHASONE
     Indication: LYMPHOMA
     Dosage: DAYS 1-4
     Route: 041
  2. CISPLATIN. [Suspect]
     Active Substance: CISPLATIN
     Indication: LYMPHOMA
     Dosage: 25 MG/M2 DAILY; DAYS 1-4
     Route: 041
  3. CYTARABINE. [Suspect]
     Active Substance: CYTARABINE
     Indication: LYMPHOMA
     Dosage: 2 X 0.5 G/M2 ONE HOUR INFUSIONS ON DAYS 1-4
     Route: 041

REACTIONS (1)
  - Adverse event [Fatal]
